FAERS Safety Report 9297869 (Version 1)
Quarter: 2013Q2

REPORT INFORMATION
  Report Type: Spontaneous
  Country: DK (occurrence: DK)
  Receive Date: 20130520
  Receipt Date: 20130520
  Transmission Date: 20140414
  Serious: Yes (Hospitalization)
  Sender: FDA-Public Use
  Company Number: DK-PFIZER INC-2013153673

PATIENT
  Age: 43 Year
  Sex: Male
  Weight: 94 kg

DRUGS (5)
  1. LYRICA [Suspect]
     Indication: GENERALISED ANXIETY DISORDER
     Dosage: STRENGTH: 150 MG
     Route: 048
     Dates: start: 20121201, end: 20130505
  2. CLOZAPIN ^HEXAL^ [Interacting]
     Indication: SCHIZOPHRENIA
     Dates: start: 2000
  3. ANTABUS [Concomitant]
     Indication: ALCOHOL ABUSE
  4. DELEPSINE RETARD [Concomitant]
     Indication: CONVULSION
  5. LITAREX [Concomitant]
     Indication: MOOD ALTERED

REACTIONS (4)
  - Drug interaction [Unknown]
  - Dizziness [Recovered/Resolved]
  - Ankle fracture [Unknown]
  - Fall [Recovered/Resolved]
